FAERS Safety Report 22610178 (Version 1)
Quarter: 2023Q2

REPORT INFORMATION
  Report Type: Spontaneous
  Country: US (occurrence: US)
  Receive Date: 20230616
  Receipt Date: 20230616
  Transmission Date: 20230722
  Serious: Yes (Other)
  Sender: FDA-Public Use
  Company Number: US-TAKEDA-2023TUS058808

PATIENT
  Age: 29 Year
  Sex: Male

DRUGS (1)
  1. VYVANSE [Suspect]
     Active Substance: LISDEXAMFETAMINE DIMESYLATE
     Indication: Attention deficit hyperactivity disorder
     Dosage: UNK
     Route: 065

REACTIONS (7)
  - Bipolar disorder [Unknown]
  - Schizophrenia [Unknown]
  - Impaired quality of life [Unknown]
  - Poor quality sleep [Unknown]
  - Social avoidant behaviour [Unknown]
  - Psychotic disorder [Unknown]
  - Depression [Unknown]
